FAERS Safety Report 5108286-5 (Version None)
Quarter: 2006Q3

REPORT INFORMATION
  Report Type: 
  Country: None (occurrence: None)
  Receive Date: 20060914
  Receipt Date: 20060914
  Transmission Date: 20061208
  Serious: Yes (Other)
  Sender: FDA-Public Use
  Company Number: None

PATIENT
  Sex: Female
  Weight: 67.2231 kg

DRUGS (9)
  1. AMOXICILLIN + CLAVULANATE POTASSIUM [Suspect]
     Indication: CHRONIC OBSTRUCTIVE PULMONARY DISEASE
     Dosage: PO 1 TAB Q 12 H
     Route: 048
     Dates: start: 20060125, end: 20060224
  2. APAP TAB [Concomitant]
  3. ALBUTEROL [Concomitant]
  4. ALENDRONATE SODIUM [Concomitant]
  5. TENORETIC 50/25 [Concomitant]
  6. DIGOXIN [Concomitant]
  7. BENADRYL [Concomitant]
  8. ERGOCALCIFEROL [Concomitant]
  9. FELODIPINE [Concomitant]

REACTIONS (3)
  - CHOLESTASIS [None]
  - DRUG TOXICITY [None]
  - HEPATOTOXICITY [None]
